FAERS Safety Report 8233990-X (Version None)
Quarter: 2012Q1

REPORT INFORMATION
  Report Type: 
  Country: None (occurrence: None)
  Receive Date: 20120326
  Receipt Date: 20120321
  Transmission Date: 20120608
  Serious: No
  Sender: FDA-Public Use
  Company Number: US-TEVA-329498USA

PATIENT
  Sex: Female
  Weight: 104.42 kg

DRUGS (4)
  1. ALBUTEROL [Concomitant]
     Indication: ASTHMA
  2. ADVAIR DISKUS 100/50 [Concomitant]
     Indication: ASTHMA
  3. CLARITIN [Concomitant]
     Indication: HYPERSENSITIVITY
  4. PLAN B ONE-STEP [Suspect]
     Indication: POST COITAL CONTRACEPTION
     Dosage: 1.5 MILLIGRAM;
     Route: 048
     Dates: start: 20120310, end: 20120310

REACTIONS (3)
  - MOOD ALTERED [None]
  - PELVIC PAIN [None]
  - MENSTRUATION IRREGULAR [None]
